FAERS Safety Report 10044293 (Version 1)
Quarter: 2014Q1

REPORT INFORMATION
  Report Type: Spontaneous
  Country: JP (occurrence: JP)
  Receive Date: 20140328
  Receipt Date: 20140328
  Transmission Date: 20141002
  Serious: Yes (Other)
  Sender: FDA-Public Use
  Company Number: JP-MALLINCKRODT-T201401662

PATIENT
  Age: 55 Year
  Sex: Male

DRUGS (3)
  1. METHADONE [Suspect]
     Indication: CANCER PAIN
     Dosage: 30 MG DAILY DOSE
     Route: 048
     Dates: start: 20140304, end: 20140308
  2. MORPHINE HYDROCHLORIDE [Concomitant]
     Dosage: 200 MG, UNK
     Route: 051
     Dates: end: 20140303
  3. MORPHINE HYDROCHLORIDE [Concomitant]
     Dosage: 120 MG, UNK
     Route: 051
     Dates: start: 20140304

REACTIONS (2)
  - Sepsis [Unknown]
  - Delirium [Recovered/Resolved]
